FAERS Safety Report 5704114-5 (Version None)
Quarter: 2008Q2

REPORT INFORMATION
  Report Type: 
  Country: None (occurrence: None)
  Receive Date: 20080414
  Receipt Date: 20080404
  Transmission Date: 20081010
  Serious: Yes (Other)
  Sender: FDA-Public Use
  Company Number: FR-PURDUE-GBR_2008_0003896

PATIENT
  Age: 80 Year
  Sex: Female

DRUGS (8)
  1. MORPHINE SULFATE [Suspect]
     Indication: BACK PAIN
     Dosage: 40 MG, DAILY
     Route: 048
  2. KAYEXALATE [Suspect]
     Indication: HYPERKALAEMIA
     Dosage: 2 DF, DAILY
     Route: 048
  3. UN-ALFA [Concomitant]
     Dosage: .25 MCG, DAILY
     Route: 048
  4. GARDENAL [Concomitant]
     Dosage: 100 MG, DAILY
     Route: 048
  5. GARDENAL [Concomitant]
     Dosage: 50 MG, DAILY
     Route: 048
  6. LUBENTYL [Concomitant]
     Route: 048
  7. NEXIUM [Concomitant]
     Dosage: 20 MG, DAILY
     Route: 048
  8. GANFORT [Concomitant]
     Dosage: 300 MCG/ML, DAILY
     Route: 047

REACTIONS (2)
  - FAECALOMA [None]
  - HYPOKALAEMIA [None]
